FAERS Safety Report 4626728-6 (Version None)
Quarter: 2005Q2

REPORT INFORMATION
  Report Type: 
  Country: None (occurrence: None)
  Receive Date: 20050401
  Receipt Date: 20050401
  Transmission Date: 20051028
  Serious: No
  Sender: FDA-Public Use
  Company Number: None

PATIENT
  Sex: Male
  Weight: 83 kg

DRUGS (1)
  1. CISPLATIN [Suspect]
     Dosage: 200 MG, 26 JAN 2005 AND 170 MG 16 FEB 2005, 170 MG 03/09/2005
     Dates: start: 20050309

REACTIONS (2)
  - DYSPHAGIA [None]
  - GENERAL PHYSICAL HEALTH DETERIORATION [None]
